FAERS Safety Report 11519899 (Version 1)
Quarter: 2015Q3

REPORT INFORMATION
  Report Type: Spontaneous
  Country: CA (occurrence: CA)
  Receive Date: 20150918
  Receipt Date: 20150918
  Transmission Date: 20151125
  Serious: Yes (Other)
  Sender: FDA-Public Use
  Company Number: CA-JNJFOC-20150903651

PATIENT

DRUGS (2)
  1. TYLENOL [Suspect]
     Active Substance: ACETAMINOPHEN
     Route: 048
  2. TYLENOL [Suspect]
     Active Substance: ACETAMINOPHEN
     Indication: EAR PAIN
     Dosage: THE PATIENT WAS NOT SURE IF THE DOSAGE WAS 600 MG OR 6000 MG AND IF IT WAS 1 PILL OR 2 PILLS.
     Route: 048

REACTIONS (4)
  - Depression [Unknown]
  - Suicidal ideation [Unknown]
  - Hypertension [Unknown]
  - Homicidal ideation [Unknown]
